FAERS Safety Report 19382173 (Version 3)
Quarter: 2021Q3

REPORT INFORMATION
  Report Type: Spontaneous
  Country: US (occurrence: US)
  Receive Date: 20210607
  Receipt Date: 20210809
  Transmission Date: 20211014
  Serious: Yes (Other)
  Sender: FDA-Public Use
  Company Number: US-PFIZER INC-2021026458

PATIENT
  Age: 73 Year
  Sex: Female

DRUGS (1)
  1. IBRANCE [Suspect]
     Active Substance: PALBOCICLIB
     Dosage: 125 MG, DAILY (TAKE 125MG BY MOUTH ONCE DAILY)
     Route: 048

REACTIONS (12)
  - Intervertebral disc protrusion [Unknown]
  - Fatigue [Unknown]
  - Neoplasm progression [Unknown]
  - Memory impairment [Unknown]
  - Anxiety [Unknown]
  - Fibromyalgia [Unknown]
  - Back pain [Unknown]
  - Arthropathy [Unknown]
  - Feeling abnormal [Unknown]
  - Crying [Unknown]
  - Arthralgia [Unknown]
  - Depressed mood [Unknown]
